FAERS Safety Report 11058126 (Version 1)
Quarter: 2015Q2

REPORT INFORMATION
  Report Type: Spontaneous
  Country: US (occurrence: None)
  Receive Date: 20150421
  Receipt Date: 20150421
  Transmission Date: 20150821
  Serious: Yes (Other)
  Sender: FDA-Public Use
  Company Number: 2015COV00082

PATIENT
  Sex: Male

DRUGS (3)
  1. NEXIUM [Suspect]
     Active Substance: ESOMEPRAZOLE MAGNESIUM
  2. DIGOXIN. [Suspect]
     Active Substance: DIGOXIN
  3. WARFARIN [Suspect]
     Active Substance: WARFARIN

REACTIONS (3)
  - Pain in extremity [None]
  - Neck pain [None]
  - Haemorrhage [None]

NARRATIVE: CASE EVENT DATE: 20150323
